FAERS Safety Report 8975116 (Version 1)
Quarter: 2012Q4

REPORT INFORMATION
  Report Type: 
  Country: US (occurrence: US)
  Receive Date: 20121219
  Receipt Date: 20121219
  Transmission Date: 20130627
  Serious: No
  Sender: FDA-Public Use
  Company Number: US-AMGEN-USASP2012072210

PATIENT
  Age: 73 Year
  Sex: Female
  Weight: 90.7 kg

DRUGS (6)
  1. PROLIA [Suspect]
     Indication: PRODUCT USED FOR UNKNOWN INDICATION
     Dosage: 60 mg, UNK
     Dates: start: 20121107
  2. PLAVIX [Concomitant]
     Indication: CEREBROVASCULAR ACCIDENT
     Dosage: 75 mg, qd
     Route: 048
  3. CYCLOBENZAPRINE [Concomitant]
     Indication: PAIN
     Dosage: 10 g, UNK
     Route: 048
  4. NAPROXEN [Concomitant]
     Indication: PAIN
     Dosage: 500 g, UNK
     Route: 048
  5. ENALAPRIL [Concomitant]
     Indication: HYPERTENSION
     Dosage: 5 g, qd
     Route: 048
  6. LYRICA [Concomitant]
     Indication: PAIN
     Dosage: 75 mg, qd
     Route: 048

REACTIONS (1)
  - Eczema [Recovered/Resolved]
